FAERS Safety Report 9490803 (Version 3)
Quarter: 2014Q3

REPORT INFORMATION
  Report Type: Spontaneous
  Country: US (occurrence: US)
  Receive Date: 20130830
  Receipt Date: 20140717
  Transmission Date: 20150326
  Serious: Yes (Hospitalization, Other)
  Sender: FDA-Public Use
  Company Number: US-BAYER-2013-104348

PATIENT
  Age: 29 Year
  Sex: Female
  Weight: 77.1 kg

DRUGS (1)
  1. MIRENA [Suspect]
     Active Substance: LEVONORGESTREL
     Indication: CONTRACEPTION
     Dosage: 20 MCG/24HR, CONT
     Route: 015
     Dates: start: 20090602, end: 20120829

REACTIONS (9)
  - Uterine perforation [None]
  - Device colour issue [None]
  - Injury [None]
  - Pelvic pain [None]
  - Medical device pain [None]
  - Medical device discomfort [None]
  - Genital haemorrhage [None]
  - Device dislocation [None]
  - Infection [None]
